FAERS Safety Report 8381308-4 (Version None)
Quarter: 2012Q2

REPORT INFORMATION
  Report Type: 
  Country: None (occurrence: None)
  Receive Date: 20120523
  Receipt Date: 20120521
  Transmission Date: 20120825
  Serious: Yes (Other)
  Sender: FDA-Public Use
  Company Number: CA-TEVA-315172USA

PATIENT
  Sex: Male

DRUGS (9)
  1. METHOTREXATE [Suspect]
     Dates: start: 20101201
  2. ABATACEPT [Suspect]
     Dosage: 125 MILLIGRAM;
     Route: 058
     Dates: start: 20080617
  3. FOLIC ACID [Concomitant]
     Dates: start: 20100610
  4. TELMISARTAN [Concomitant]
     Dates: start: 19980101
  5. ASPIRIN [Concomitant]
     Dates: start: 20030507
  6. ROSUVASTATIN [Concomitant]
     Dates: start: 20040408
  7. AMLODIPINE BESYLATE [Concomitant]
     Dates: start: 20030630
  8. METFORMIN HCL [Concomitant]
     Dates: start: 20030507
  9. PREDNISONE [Concomitant]
     Dates: start: 20090616

REACTIONS (1)
  - LUNG ADENOCARCINOMA METASTATIC [None]
